FAERS Safety Report 10653995 (Version 1)
Quarter: 2014Q4

REPORT INFORMATION
  Report Type: Spontaneous
  Country: US (occurrence: None)
  Receive Date: 20141212
  Receipt Date: 20141212
  Transmission Date: 20150529
  Serious: Yes (Hospitalization)
  Sender: FDA-Public Use
  Company Number: US-H14001-14-01777

PATIENT
  Age: 78 Year
  Sex: Female

DRUGS (9)
  1. METFORMIN (METFORMIN) (UNKNOWN) (METFORMIN [Concomitant]
  2. CITALOPRAM (CITALOPRAM) (UNKNOWN) (CITALOPRAM) [Concomitant]
  3. METOLAZONE (METOLAZONE) (UNKNOWN) (METOLAZONE) [Concomitant]
  4. LISINOPRIL (LISINOPRIL) (UNKNOWN) (LISINOPRIL) [Suspect]
     Active Substance: LISINOPRIL
     Indication: PRODUCT USED FOR UNKNOWN INDICATION
     Dosage: 5 MG
  5. FUROSEMIDE (FUROSEMIDE) UNKNOWN [Suspect]
     Active Substance: FUROSEMIDE
     Indication: PRODUCT USED FOR UNKNOWN INDICATION
     Dosage: 60 MG, UNKNOWN
  6. SIMVASTATIN (SIMVASTATIN) (UNKNOWN) (SIMVASTATIN) [Concomitant]
  7. ALBUTEROL (SALBUTAMOL) (UNKNOWN) (SALBUTAMOL) [Concomitant]
  8. GABAPENTIN (GABAPENTIN) (UNKNOWN) (GABAPENTIN) [Suspect]
     Active Substance: GABAPENTIN
     Indication: NEURALGIA
     Dosage: 900 MG, UNKNOWN
  9. FLUTICASONE PROPRIONATE (FLUTICASONE PROPIONATE) (INHALANT) (FLUTICASONE PROPIONATE) [Concomitant]

REACTIONS (6)
  - Myoclonus [None]
  - Blood urea increased [None]
  - Tremor [None]
  - Blood sodium decreased [None]
  - Blood potassium increased [None]
  - Blood creatinine increased [None]
